FAERS Safety Report 9315604 (Version 3)
Quarter: 2013Q3

REPORT INFORMATION
  Report Type: Spontaneous
  Country: GB (occurrence: GB)
  Receive Date: 20130529
  Receipt Date: 20130731
  Transmission Date: 20140515
  Serious: Yes (Other)
  Sender: FDA-Public Use
  Company Number: GB-BAUSCH-BL-2013-003256

PATIENT
  Age: 53 Year
  Sex: Male
  Weight: 64 kg

DRUGS (11)
  1. DEXAMETHASONE [Suspect]
     Indication: PLASMA CELL MYELOMA
     Route: 065
  2. CYCLOPHOSPHAMIDE [Suspect]
     Indication: PLASMA CELL MYELOMA
     Route: 065
  3. SULFAMETHOXAZOLE/TRIMETHOPRIM [Suspect]
     Indication: PRODUCT USED FOR UNKNOWN INDICATION
     Route: 065
     Dates: start: 20130114, end: 20130204
  4. BORTEZOMIB [Suspect]
     Indication: PLASMA CELL MYELOMA
     Route: 065
     Dates: start: 20130114
  5. ACICLOVIR [Concomitant]
     Dates: start: 20130114
  6. ALLOPURINOL [Concomitant]
     Dates: start: 20130114
  7. AZITHROMYCIN [Concomitant]
     Dates: start: 20130225
  8. FLUCONAZOLE [Concomitant]
     Dates: start: 20130114
  9. LANSOPRAZOLE [Concomitant]
     Dates: start: 20130114
  10. METOCLOPRAMIDE [Concomitant]
     Dates: start: 20130114
  11. CO-TRIMOXAZOLE [Concomitant]
     Dates: start: 20130114, end: 20130204

REACTIONS (4)
  - Alanine aminotransferase increased [Recovered/Resolved]
  - Platelet count decreased [Recovered/Resolved]
  - Rash [Unknown]
  - Bone marrow failure [Unknown]
